FAERS Safety Report 10090509 (Version 2)
Quarter: 2014Q3

REPORT INFORMATION
  Report Type: Spontaneous
  Country: US (occurrence: None)
  Receive Date: 20140417
  Receipt Date: 20140716
  Transmission Date: 20150326
  Serious: Yes (Hospitalization, Other)
  Sender: FDA-Public Use
  Company Number: UTC-047117

PATIENT
  Age: 45 Year
  Sex: Female
  Weight: 88.9 kg

DRUGS (3)
  1. WARFARIN (WARFARIN) [Concomitant]
     Active Substance: WARFARIN
  2. REVATIO (SILDENAFIL CITRATE) [Concomitant]
  3. REMODULIN [Suspect]
     Active Substance: TREPROSTINIL
     Indication: PULMONARY ARTERIAL HYPERTENSION
     Route: 058
     Dates: start: 20140104

REACTIONS (6)
  - Oedema peripheral [None]
  - Cough [None]
  - Neuritis [None]
  - Chills [None]
  - Dyspnoea [None]
  - Herpes zoster infection neurological [None]

NARRATIVE: CASE EVENT DATE: 201404
